FAERS Safety Report 11893156 (Version 1)
Quarter: 2016Q1

REPORT INFORMATION
  Report Type: Spontaneous
  Country: None (occurrence: US)
  Receive Date: 20160106
  Receipt Date: 20160106
  Transmission Date: 20160526
  Serious: No
  Sender: FDA-Public Use
  Company Number: US-MERZ NORTH AMERICA, INC.-16MRZ-00012

PATIENT
  Sex: Female
  Weight: 44.54 kg

DRUGS (14)
  1. SINGULAIR [Concomitant]
     Active Substance: MONTELUKAST SODIUM
  2. MELATONIN [Concomitant]
     Active Substance: MELATONIN
  3. PREVACID [Concomitant]
     Active Substance: LANSOPRAZOLE
  4. FISH OIL [Concomitant]
     Active Substance: FISH OIL
  5. CLARITIN [Concomitant]
     Active Substance: LORATADINE
  6. TRAZODONE [Concomitant]
     Active Substance: TRAZODONE HYDROCHLORIDE
  7. TRILEPTAL [Concomitant]
     Active Substance: OXCARBAZEPINE
  8. CUVPOSA [Suspect]
     Active Substance: GLYCOPYRROLATE
     Indication: ASPIRATION
  9. CUVPOSA [Suspect]
     Active Substance: GLYCOPYRROLATE
     Indication: DROOLING
  10. TOPAMAX [Concomitant]
     Active Substance: TOPIRAMATE
  11. XOPENEX [Concomitant]
     Active Substance: LEVALBUTEROL HYDROCHLORIDE
  12. CUVPOSA [Suspect]
     Active Substance: GLYCOPYRROLATE
     Indication: RETT SYNDROME
     Dosage: 8ML THREE TIMES A DAY
  13. PULMICORT TURBUHALER [Concomitant]
     Active Substance: BUDESONIDE
  14. VITAMIN D [Concomitant]
     Active Substance: CHOLECALCIFEROL

REACTIONS (1)
  - Weight increased [None]
